FAERS Safety Report 9500052 (Version 1)
Quarter: 2013Q1

REPORT INFORMATION
  Report Type: Spontaneous
  Country: US (occurrence: None)
  Receive Date: 20130129
  Receipt Date: 20130129
  Transmission Date: 20140127
  Serious: Yes (Other)
  Sender: FDA-Public Use
  Company Number: 1000027151

PATIENT
  Age: 57 Year
  Sex: Male

DRUGS (5)
  1. BYSTOLIC [Suspect]
     Indication: HYPERTENSION
     Dosage: 10 MG (10 MG, 1 IN 1 D), ORAL
     Route: 048
     Dates: end: 201201
  2. BYSTOLIC [Suspect]
     Indication: HYPERTENSION
     Dosage: 10 MG AM, 5 MG PM
     Dates: start: 201201, end: 201202
  3. B VITAMIN (NOS (B VITAMIN NOS0 (B VITAMIN NOS) [Concomitant]
  4. BAY ASPIRIN (ACETYLSALICYLIC ACID) (ACETYLSALICYLIC ACID) [Concomitant]
  5. MEGARED (OMEGA-3 KRILL OIL) (OMEGA-3 KRILL OIL) [Concomitant]

REACTIONS (3)
  - Blood pressure increased [None]
  - Drug ineffective [None]
  - Headache [None]
